FAERS Safety Report 15539226 (Version 2)
Quarter: 2018Q4

REPORT INFORMATION
  Report Type: Spontaneous
  Country: US (occurrence: US)
  Receive Date: 20181022
  Receipt Date: 20181029
  Transmission Date: 20190205
  Serious: Yes (Death, Hospitalization, Other)
  Sender: FDA-Public Use
  Company Number: US-GILEAD-2018-0369271

PATIENT

DRUGS (4)
  1. FLUDARABINE [Concomitant]
     Active Substance: FLUDARABINE PHOSPHATE
     Indication: BONE MARROW CONDITIONING REGIMEN
     Dosage: UNK
     Dates: start: 20180811, end: 20180813
  2. RITUXAN [Concomitant]
     Active Substance: RITUXIMAB
     Indication: LYMPHOMA
     Dosage: UNK
     Dates: start: 201807
  3. YESCARTA [Suspect]
     Active Substance: AXICABTAGENE CILOLEUCEL
     Indication: LYMPHOMA
     Dosage: UNK, SINGLE
     Route: 042
     Dates: start: 20180820, end: 20180820
  4. CYCLOPHOSPHAMIDE. [Concomitant]
     Active Substance: CYCLOPHOSPHAMIDE
     Indication: BONE MARROW CONDITIONING REGIMEN
     Dosage: UNK
     Dates: start: 20180811, end: 20180813

REACTIONS (12)
  - Neurotoxicity [Unknown]
  - Ascites [Unknown]
  - Gastrointestinal oedema [Unknown]
  - Mental status changes [Not Recovered/Not Resolved]
  - Stridor [Recovered/Resolved]
  - Pyrexia [Unknown]
  - Atrial fibrillation [Recovered/Resolved]
  - Pleural effusion [Unknown]
  - Disease progression [Unknown]
  - Cytokine release syndrome [Unknown]
  - Hypotension [Recovered/Resolved]
  - Intraventricular haemorrhage [Fatal]

NARRATIVE: CASE EVENT DATE: 20180820
